FAERS Safety Report 5521729-8 (Version None)
Quarter: 2007Q4

REPORT INFORMATION
  Report Type: 
  Country: None (occurrence: None)
  Receive Date: 20071120
  Receipt Date: 20071114
  Transmission Date: 20080405
  Serious: Yes (Other)
  Sender: FDA-Public Use
  Company Number: US-ASTRAZENECA-2007UW26500

PATIENT
  Age: 76 Year
  Sex: Female
  Weight: 56.7 kg

DRUGS (4)
  1. ARIMIDEX [Suspect]
     Indication: OVARIAN CANCER
     Route: 048
     Dates: start: 20071001
  2. PREDNISONE TAB [Concomitant]
  3. NEXIUM [Concomitant]
     Route: 048
  4. METOPROLOL [Concomitant]

REACTIONS (9)
  - ARTHRALGIA [None]
  - JOINT RANGE OF MOTION DECREASED [None]
  - MALAISE [None]
  - MUSCULOSKELETAL PAIN [None]
  - MYALGIA [None]
  - OVARIAN CANCER [None]
  - PAIN IN EXTREMITY [None]
  - PAIN IN JAW [None]
  - TOOTHACHE [None]
